FAERS Safety Report 13915381 (Version 1)
Quarter: 2017Q3

REPORT INFORMATION
  Report Type: Spontaneous
  Country: DE (occurrence: DE)
  Receive Date: 20170829
  Receipt Date: 20170829
  Transmission Date: 20171127
  Serious: Yes (Other)
  Sender: FDA-Public Use
  Company Number: DE-DRREDDYS-GER/GER/17/0092865

PATIENT
  Age: 14 Year
  Sex: Female
  Weight: 37.6 kg

DRUGS (4)
  1. LEVETIRACETAM. [Suspect]
     Active Substance: LEVETIRACETAM
     Indication: EPILEPSY
     Route: 048
     Dates: start: 20160109
  2. OSPOLOT [Suspect]
     Active Substance: SULTHIAME
     Indication: EPILEPSY
     Route: 048
     Dates: start: 20160109, end: 20161003
  3. LEVETIRACETAM. [Suspect]
     Active Substance: LEVETIRACETAM
     Route: 048
     Dates: end: 20161003
  4. BELLA HEXAL [Concomitant]
     Active Substance: CYPROTERONE ACETATE\ETHINYL ESTRADIOL
     Indication: CONTRACEPTION
     Dosage: 0.035 MG/2 MG
     Route: 048
     Dates: start: 20160109, end: 20160204

REACTIONS (3)
  - Epilepsy [Unknown]
  - Disease recurrence [Unknown]
  - Exposure during pregnancy [Unknown]
